FAERS Safety Report 4596343-1 (Version None)
Quarter: 2005Q1

REPORT INFORMATION
  Report Type: 
  Country: None (occurrence: None)
  Receive Date: 20050228
  Receipt Date: 20050217
  Transmission Date: 20050727
  Serious: Yes (Life-Threatening, Hospitalization)
  Sender: FDA-Public Use
  Company Number: 2005-02-0969

PATIENT
  Age: 4 Year
  Sex: Male
  Weight: 14 kg

DRUGS (3)
  1. CELESTONE [Suspect]
     Indication: COUGH
     Dosage: 0.4 MG QD ORAL
     Route: 048
     Dates: start: 20050122, end: 20050128
  2. ORELOX (CEFPODOXIME PROXETIL) ORAL SUSPENSION [Suspect]
     Indication: COUGH
     Dosage: 28 MG BID ORAL
     Route: 048
     Dates: start: 20050122, end: 20050128
  3. ADVIL [Suspect]
     Indication: PYREXIA
     Dosage: 105 MG QID ORAL
     Route: 048
     Dates: start: 20050120, end: 20050128

REACTIONS (3)
  - PLEURISY [None]
  - PLEUROPERICARDITIS [None]
  - PNEUMOCOCCAL INFECTION [None]
